FAERS Safety Report 25796060 (Version 1)
Quarter: 2025Q3

REPORT INFORMATION
  Report Type: Spontaneous
  Country: US (occurrence: None)
  Receive Date: 20250911
  Receipt Date: 20250911
  Transmission Date: 20251020
  Serious: Yes (Disabling, Other)
  Sender: FDA-CTU
  Company Number: None

PATIENT
  Age: 52 Year
  Sex: Female
  Weight: 89.1 kg

DRUGS (1)
  1. SEMAGLUTIDE [Suspect]
     Active Substance: SEMAGLUTIDE
     Indication: Weight decreased
     Dosage: FREQUENCY : DAILY;?OTHER ROUTE : INJECTED TO STOMACHE;?
     Route: 050
     Dates: start: 20231002

REACTIONS (3)
  - General physical health deterioration [None]
  - Nerve injury [None]
  - Bladder disorder [None]

NARRATIVE: CASE EVENT DATE: 20250105
